FAERS Safety Report 7462812-X (Version None)
Quarter: 2011Q2

REPORT INFORMATION
  Report Type: 
  Country: None (occurrence: None)
  Receive Date: 20110506
  Receipt Date: 20110422
  Transmission Date: 20111010
  Serious: Yes (Congenital Anomaly)
  Sender: FDA-Public Use
  Company Number: FR-JNJFOC-20110411625

PATIENT
  Sex: Male
  Weight: 4.46 kg

DRUGS (8)
  1. ABILIFY [Suspect]
     Indication: DRUG EXPOSURE DURING PREGNANCY
     Route: 064
  2. TERCIAN [Suspect]
     Indication: DRUG EXPOSURE DURING PREGNANCY
     Route: 064
  3. TRANXENE [Suspect]
     Dosage: 1-0-0-2
     Route: 064
  4. RISPERDAL [Suspect]
     Indication: DRUG EXPOSURE DURING PREGNANCY
     Route: 064
  5. TERCIAN [Suspect]
     Route: 064
  6. LEPTICUR [Suspect]
     Indication: DRUG EXPOSURE DURING PREGNANCY
     Route: 064
  7. TERCIAN [Suspect]
     Route: 064
  8. TRANXENE [Suspect]
     Indication: DRUG EXPOSURE DURING PREGNANCY
     Dosage: 1-1-1-2
     Route: 064

REACTIONS (2)
  - CRYPTORCHISM [None]
  - HYDROCELE [None]
